FAERS Safety Report 18633364 (Version 1)
Quarter: 2020Q4

REPORT INFORMATION
  Report Type: Spontaneous
  Country: US (occurrence: US)
  Receive Date: 20201218
  Receipt Date: 20201218
  Transmission Date: 20210114
  Serious: Yes (Other)
  Sender: FDA-Public Use
  Company Number: US-REGENERON PHARMACEUTICALS, INC.-2020-11087

PATIENT

DRUGS (9)
  1. EYLEA [Suspect]
     Active Substance: AFLIBERCEPT
     Indication: DIABETIC RETINOPATHY
     Dosage: 2 MG/0.05ML, EVERY 4-5 WEEKS, BOTH EYES
     Route: 031
     Dates: start: 20191231
  2. EYLEA [Suspect]
     Active Substance: AFLIBERCEPT
     Dosage: 2 MG/0.05ML, EVERY 4-5 WEEKS, BOTH EYES
     Route: 031
  3. EYLEA [Suspect]
     Active Substance: AFLIBERCEPT
     Dosage: 2 MG/0.05ML, EVERY 4-5 WEEKS, BOTH EYES
     Route: 031
  4. EYLEA [Suspect]
     Active Substance: AFLIBERCEPT
     Dosage: 2 MG/0.05ML, EVERY 4-5 WEEKS, BOTH EYES
     Route: 031
  5. EYLEA [Suspect]
     Active Substance: AFLIBERCEPT
     Dosage: 2 MG/0.05ML, EVERY 4-5 WEEKS, BOTH EYES
     Route: 031
     Dates: start: 20200127, end: 20200127
  6. LEVOTHYROXINE. [Concomitant]
     Active Substance: LEVOTHYROXINE
     Indication: PRODUCT USED FOR UNKNOWN INDICATION
     Dosage: UNK
  7. EYLEA [Suspect]
     Active Substance: AFLIBERCEPT
     Indication: DIABETIC RETINAL OEDEMA
     Dosage: 2 MG/0.05ML, EVERY 4-5 WEEKS, BOTH EYES
     Route: 031
  8. EYLEA [Suspect]
     Active Substance: AFLIBERCEPT
     Dosage: 2 MG/0.05ML, EVERY 4-5 WEEKS, BOTH EYES
     Route: 031
  9. VICTOZA [Concomitant]
     Active Substance: LIRAGLUTIDE
     Indication: PRODUCT USED FOR UNKNOWN INDICATION
     Dosage: UNK

REACTIONS (2)
  - Wrong technique in product usage process [Unknown]
  - Vitritis [Recovered/Resolved]

NARRATIVE: CASE EVENT DATE: 20200103
